FAERS Safety Report 9236024 (Version 1)
Quarter: 2013Q1

REPORT INFORMATION
  Report Type: Spontaneous
  Country: US (occurrence: None)
  Receive Date: 20121031
  Receipt Date: 20121031
  Transmission Date: 20140127
  Serious: No
  Sender: FDA-Public Use
  Company Number: PHEH2012US011208

PATIENT
  Age: 52 Year
  Sex: Female

DRUGS (5)
  1. GILENYA (FTY) CAPSULE [Suspect]
     Indication: MULTIPLE SCLEROSIS
     Route: 048
     Dates: start: 20120515
  2. FAMPRIDINE (FAMPRIDINE) [Concomitant]
  3. ZOLOFT (SERTRALINE HYDROCHLORIDE) [Concomitant]
  4. OXYBUTYNIN (OXYBUTYNIN) [Concomitant]
  5. AMANTADINE (AMANTADINE) [Concomitant]

REACTIONS (2)
  - Musculoskeletal discomfort [None]
  - Somnolence [None]
